FAERS Safety Report 6555150-0 (Version None)
Quarter: 2010Q1

REPORT INFORMATION
  Report Type: 
  Country: None (occurrence: None)
  Receive Date: 20100126
  Receipt Date: 20100126
  Transmission Date: 20100710
  Serious: No
  Sender: FDA-Public Use
  Company Number: None

PATIENT
  Sex: Male
  Weight: 150.5942 kg

DRUGS (1)
  1. TRILEPTAL [Suspect]
     Dosage: TRILEPTAL 600MG BID ORAL LIQUID
     Route: 048
     Dates: start: 20080424

REACTIONS (2)
  - DRUG INEFFECTIVE [None]
  - PRODUCT SUBSTITUTION ISSUE [None]
